FAERS Safety Report 14669431 (Version 1)
Quarter: 2018Q1

REPORT INFORMATION
  Report Type: Spontaneous
  Country: US (occurrence: US)
  Receive Date: 20180322
  Receipt Date: 20180322
  Transmission Date: 20180509
  Serious: Yes (Hospitalization, Other)
  Sender: FDA-Public Use
  Company Number: US-MYLANLABS-2018M1017051

PATIENT
  Age: 70 Year
  Sex: Female

DRUGS (1)
  1. MAGNESIUM CITRATE. [Suspect]
     Active Substance: MAGNESIUM CITRATE
     Indication: BOWEL PREPARATION
     Dosage: UNK
     Route: 065

REACTIONS (1)
  - Myasthenia gravis crisis [Recovering/Resolving]
